FAERS Safety Report 17402215 (Version 1)
Quarter: 2020Q1

REPORT INFORMATION
  Report Type: Spontaneous
  Country: NL (occurrence: NL)
  Receive Date: 20200211
  Receipt Date: 20200211
  Transmission Date: 20200409
  Serious: Yes (Other)
  Sender: FDA-Public Use
  Company Number: NL-ROCHE-2542714

PATIENT
  Sex: Female

DRUGS (1)
  1. OMALIZUMAB. [Suspect]
     Active Substance: OMALIZUMAB
     Indication: URTICARIA
     Route: 065

REACTIONS (3)
  - Anaphylactic reaction [Not Recovered/Not Resolved]
  - Therapeutic product effect decreased [Unknown]
  - Urticaria [Not Recovered/Not Resolved]
